FAERS Safety Report 5499689-8 (Version None)
Quarter: 2007Q4

REPORT INFORMATION
  Report Type: 
  Country: None (occurrence: None)
  Receive Date: 20071026
  Receipt Date: 20071012
  Transmission Date: 20080405
  Serious: Yes (Death, Hospitalization, Other)
  Sender: FDA-Public Use
  Company Number: CA-SHR-CA-SHR-03-015519

PATIENT
  Age: 49 Year
  Sex: Male

DRUGS (5)
  1. BETASERON [Suspect]
     Indication: MULTIPLE SCLEROSIS
     Dosage: 8 MIU, EVERY 2D
     Route: 058
     Dates: start: 19970203, end: 20030731
  2. HEPARIN [Concomitant]
  3. NOZINAN [Concomitant]
  4. SERAX [Concomitant]
     Indication: ANXIETY
  5. XANAX [Concomitant]
     Indication: ANXIETY

REACTIONS (5)
  - BRONCHITIS [None]
  - LUNG INFECTION [None]
  - LUNG NEOPLASM MALIGNANT [None]
  - PNEUMOTHORAX [None]
  - STAPHYLOCOCCAL INFECTION [None]
